FAERS Safety Report 14557269 (Version 5)
Quarter: 2021Q3

REPORT INFORMATION
  Report Type: Spontaneous
  Country: IT (occurrence: IT)
  Receive Date: 20180221
  Receipt Date: 20210805
  Transmission Date: 20211014
  Serious: Yes (Life-Threatening, Hospitalization, Other)
  Sender: FDA-Public Use
  Company Number: IT-AUROBINDO-AUR-APL-2018-008673

PATIENT
  Age: 5 Year
  Sex: Female

DRUGS (12)
  1. IBUPROFEN. [Suspect]
     Active Substance: IBUPROFEN
     Indication: HYPERPYREXIA
  2. IBUPROFEN. [Suspect]
     Active Substance: IBUPROFEN
     Indication: ANALGESIC INTERVENTION SUPPORTIVE THERAPY
  3. ORAL REHYDRATION SALT [Concomitant]
     Indication: DEHYDRATION
     Dosage: UNK
     Route: 048
  4. PARACETAMOL [Suspect]
     Active Substance: ACETAMINOPHEN
     Indication: ANALGESIC INTERVENTION SUPPORTIVE THERAPY
  5. CEFTRIAXON [Concomitant]
     Active Substance: CEFTRIAXONE
     Indication: FEBRILE INFECTION
  6. DIAZEPAM. [Suspect]
     Active Substance: DIAZEPAM
     Indication: FEBRILE CONVULSION
     Dosage: UNK
     Route: 054
  7. PARACETAMOL [Suspect]
     Active Substance: ACETAMINOPHEN
     Indication: FEBRILE INFECTION
  8. PARACETAMOL [Suspect]
     Active Substance: ACETAMINOPHEN
     Indication: SEIZURE PROPHYLAXIS
  9. CEFTRIAXON [Concomitant]
     Active Substance: CEFTRIAXONE
     Indication: FEBRILE CONVULSION
     Dosage: UNK
     Route: 065
  10. IBUPROFEN. [Suspect]
     Active Substance: IBUPROFEN
     Indication: PYREXIA
  11. IBUPROFEN. [Suspect]
     Active Substance: IBUPROFEN
     Indication: FEBRILE INFECTION
     Dosage: 5 MILLIGRAM/KILOGRAM, 3 TIMES A DAY
     Route: 048
  12. PARACETAMOL [Suspect]
     Active Substance: ACETAMINOPHEN
     Indication: PYREXIA
     Dosage: 11 MILLIGRAM/KILOGRAM
     Route: 048

REACTIONS (22)
  - Hepatitis cholestatic [Recovered/Resolved]
  - Hypertension [Recovered/Resolved]
  - C-reactive protein increased [Recovered/Resolved]
  - Blood creatinine increased [Recovered/Resolved]
  - Acute hepatic failure [Recovered/Resolved]
  - Blood fibrinogen increased [Recovered/Resolved]
  - Acute kidney injury [Recovered/Resolved]
  - Blood immunoglobulin G increased [Recovered/Resolved]
  - Gamma-glutamyltransferase increased [Recovered/Resolved]
  - Renal impairment [Recovered/Resolved]
  - Fibrin D dimer increased [Recovered/Resolved]
  - Blood urea increased [Recovered/Resolved]
  - Red blood cell sedimentation rate increased [Recovered/Resolved]
  - Drug interaction [Recovered/Resolved]
  - Kidney enlargement [Recovered/Resolved]
  - Platelet count increased [Recovered/Resolved]
  - Hepatic enzyme increased [Recovered/Resolved]
  - Alpha 1 microglobulin increased [Recovered/Resolved]
  - Blood sodium decreased [Recovered/Resolved]
  - Blood albumin decreased [Recovered/Resolved]
  - Base excess [Recovered/Resolved]
  - Tubulointerstitial nephritis [Unknown]
